FAERS Safety Report 13505581 (Version 1)
Quarter: 2017Q2

REPORT INFORMATION
  Report Type: Spontaneous
  Country: US (occurrence: US)
  Receive Date: 20170502
  Receipt Date: 20170502
  Transmission Date: 20170830
  Serious: No
  Sender: FDA-Public Use
  Company Number: US-ASTRAZENECA-2016SE76898

PATIENT
  Age: 50 Year
  Sex: Male

DRUGS (12)
  1. INVOKANA [Concomitant]
     Active Substance: CANAGLIFLOZIN
     Dosage: UNKNOWN
     Route: 065
     Dates: start: 20160324, end: 201604
  2. ASPIRIN. [Concomitant]
     Active Substance: ASPIRIN
     Dosage: UNKNOWN
     Route: 065
  3. LOSARTAN. [Concomitant]
     Active Substance: LOSARTAN
     Dosage: UNKNOWN
     Route: 065
  4. METFORMIN [Concomitant]
     Active Substance: METFORMIN HYDROCHLORIDE
     Dosage: UNKNOWN
     Route: 065
  5. PROZAC [Concomitant]
     Active Substance: FLUOXETINE HYDROCHLORIDE
     Dosage: UNKNOWN
     Route: 065
  6. AMLODIPINE [Concomitant]
     Active Substance: AMLODIPINE BESYLATE
     Dosage: UNKNOWN
     Route: 065
  7. METOPROLOL TARTRATE. [Suspect]
     Active Substance: METOPROLOL TARTRATE
     Route: 065
  8. AMARYL [Concomitant]
     Active Substance: GLIMEPIRIDE
     Dosage: UNKNOWN
     Route: 065
  9. BYDUREON [Suspect]
     Active Substance: EXENATIDE
     Indication: TYPE 2 DIABETES MELLITUS
     Route: 065
     Dates: start: 20160407, end: 2016
  10. TRICOR [Concomitant]
     Active Substance: FENOFIBRATE
     Dosage: UNKNOWN
     Route: 065
  11. LITHIUM. [Concomitant]
     Active Substance: LITHIUM
     Dosage: UNKNOWN
     Route: 065
  12. ZOCOR [Concomitant]
     Active Substance: SIMVASTATIN
     Dosage: UNKNOWN
     Route: 065

REACTIONS (1)
  - Blood creatinine increased [Recovering/Resolving]

NARRATIVE: CASE EVENT DATE: 20160630
